FAERS Safety Report 23384173 (Version 1)
Quarter: 2024Q1

REPORT INFORMATION
  Report Type: Spontaneous
  Country: US (occurrence: None)
  Receive Date: 20240109
  Receipt Date: 20240109
  Transmission Date: 20240410
  Serious: Yes (Other)
  Sender: FDA-Public Use
  Company Number: None

PATIENT
  Sex: Female

DRUGS (1)
  1. XOLAIR [Suspect]
     Active Substance: OMALIZUMAB
     Indication: Asthma
     Dosage: 150 MG/ML SUBCUTANEOUS??INJECT 2 SYRINGES (300 MG) UNDER THE SKIN (SUBCUTANEOUS INJECTION) EVERY 2 W
     Route: 058
     Dates: start: 20230204

REACTIONS (3)
  - Drug ineffective [None]
  - Quality of life decreased [None]
  - Asthma [None]
